FAERS Safety Report 15191295 (Version 2)
Quarter: 2018Q3

REPORT INFORMATION
  Report Type: Report from Study
  Country: US (occurrence: US)
  Receive Date: 20180724
  Receipt Date: 20180828
  Transmission Date: 20181010
  Serious: Yes (Hospitalization, Other)
  Sender: FDA-Public Use
  Company Number: US-GILEAD-2018-0351351

PATIENT
  Age: 81 Year
  Sex: Male

DRUGS (2)
  1. AMBRISENTAN [Suspect]
     Active Substance: AMBRISENTAN
     Indication: PRODUCT USED FOR UNKNOWN INDICATION
     Dosage: 10 MG, QD
     Route: 065
     Dates: start: 20170705
  2. TYVASO [Concomitant]
     Active Substance: TREPROSTINIL

REACTIONS (5)
  - Gastrointestinal pain [Unknown]
  - Unevaluable event [Unknown]
  - Cardiac discomfort [Unknown]
  - Angina pectoris [Unknown]
  - Flatulence [Unknown]
